FAERS Safety Report 8962318 (Version 1)
Quarter: 2012Q4

REPORT INFORMATION
  Report Type: Spontaneous
  Country: FR (occurrence: None)
  Receive Date: 20121203
  Receipt Date: 20121203
  Transmission Date: 20130627
  Serious: Yes (Hospitalization)
  Sender: FDA-Public Use
  Company Number: ABR_00719_2012

PATIENT
  Age: 77 Year
  Sex: Male

DRUGS (6)
  1. ERYTHROCIN [Suspect]
     Indication: ANTIBIOTIC PROPHYLAXIS
     Route: 048
     Dates: start: 20120624, end: 20120702
  2. TAZOCILLINE [Suspect]
     Indication: ANTIBIOTIC PROPHYLAXIS
     Route: 042
     Dates: start: 20120624, end: 20120709
  3. TIENAM [Suspect]
     Indication: PRODUCT USED FOR UNKNOWN INDICATION
     Route: 042
     Dates: start: 20120713, end: 20120717
  4. TIENAM [Suspect]
     Indication: PRODUCT USED FOR UNKNOWN INDICATION
  5. AMIKACIN [Concomitant]
  6. VANCOMYCINE MERCK [Concomitant]

REACTIONS (5)
  - Drug reaction with eosinophilia and systemic symptoms [None]
  - Hepatitis [None]
  - Renal failure acute [None]
  - Duodenal fistula [None]
  - Toxic skin eruption [None]
